FAERS Safety Report 18241468 (Version 1)
Quarter: 2020Q3

REPORT INFORMATION
  Report Type: Spontaneous
  Country: US (occurrence: US)
  Receive Date: 20200908
  Receipt Date: 20200908
  Transmission Date: 20201103
  Serious: No
  Sender: FDA-Public Use
  Company Number: US-BAYER-2020-185634

PATIENT
  Sex: Female

DRUGS (2)
  1. MIRALAX [Suspect]
     Active Substance: POLYETHYLENE GLYCOL 3350
     Indication: DIVERTICULITIS
     Dosage: UNK
     Route: 048
     Dates: start: 20200728
  2. BENEFIBER FIBER SUPPLEMENT [Concomitant]

REACTIONS (2)
  - Off label use [Unknown]
  - Product use in unapproved indication [Unknown]
